FAERS Safety Report 4906868-4 (Version None)
Quarter: 2006Q1

REPORT INFORMATION
  Report Type: 
  Country: None (occurrence: None)
  Receive Date: 20060207
  Receipt Date: 20060123
  Transmission Date: 20060701
  Serious: Yes (Hospitalization)
  Sender: FDA-Public Use
  Company Number: CA-2006-001380

PATIENT
  Age: 57 Year
  Sex: Female

DRUGS (1)
  1. BETASERON (INTERFERON BETA - 1B) INJECTION, 250 UG [Suspect]
     Indication: MULTIPLE SCLEROSIS
     Dosage: 8 MIU, UNK, SUBCUTANEOUS
     Route: 058
     Dates: start: 20050202

REACTIONS (2)
  - BILE DUCT OBSTRUCTION [None]
  - CHEST PAIN [None]
